FAERS Safety Report 10782574 (Version 1)
Quarter: 2015Q1

REPORT INFORMATION
  Report Type: Spontaneous
  Country: US (occurrence: None)
  Receive Date: 20150209
  Receipt Date: 20150209
  Transmission Date: 20150721
  Serious: No
  Sender: FDA-Public Use
  Company Number: None

PATIENT
  Age: 95 Year
  Sex: Female
  Weight: 113.1 kg

DRUGS (1)
  1. CLINDAMYCIN [Suspect]
     Active Substance: CLINDAMYCIN\CLINDAMYCIN PHOSPHATE
     Indication: CELLULITIS
     Dosage: MG
     Route: 048
     Dates: start: 20141026, end: 20141031

REACTIONS (7)
  - Fluid overload [None]
  - Hypotension [None]
  - Oesophageal papilloma [None]
  - Dyspnoea [None]
  - Gastric haemorrhage [None]
  - Haemoglobin decreased [None]
  - Oesophageal ulcer [None]

NARRATIVE: CASE EVENT DATE: 20141103
